FAERS Safety Report 8315173-8 (Version None)
Quarter: 2012Q2

REPORT INFORMATION
  Report Type: 
  Country: None (occurrence: None)
  Receive Date: 20120426
  Receipt Date: 20120419
  Transmission Date: 20120825
  Serious: Yes (Hospitalization)
  Sender: FDA-Public Use
  Company Number: JP-GLAXOSMITHKLINE-B0766596A

PATIENT
  Sex: Male

DRUGS (6)
  1. LIMAPROST ALFADEX [Concomitant]
     Dosage: 15MCG PER DAY
     Route: 048
  2. RABEPRAZOLE SODIUM [Concomitant]
     Dosage: 10MG PER DAY
     Route: 048
  3. DUTASTERIDE [Suspect]
     Indication: BENIGN PROSTATIC HYPERPLASIA
     Dosage: .5MG PER DAY
     Route: 048
     Dates: start: 20101002, end: 20120331
  4. ARICEPT [Concomitant]
     Dosage: 5MG PER DAY
     Route: 048
  5. SIMVASTATIN [Concomitant]
     Dosage: 5MG PER DAY
     Route: 048
  6. CHINESE MEDICINE [Concomitant]
     Dosage: 7.5G PER DAY
     Route: 048

REACTIONS (3)
  - BRADYCARDIA [None]
  - FATIGUE [None]
  - FEELING COLD [None]
